FAERS Safety Report 9238300 (Version 1)
Quarter: 2013Q2

REPORT INFORMATION
  Report Type: Spontaneous
  Country: US (occurrence: US)
  Receive Date: 20130418
  Receipt Date: 20130418
  Transmission Date: 20140414
  Serious: No
  Sender: FDA-Public Use
  Company Number: US-009507513-1304USA007942

PATIENT
  Sex: Female

DRUGS (5)
  1. VICTRELIS [Suspect]
     Indication: HEPATITIS C
     Dosage: 800 MG, TID
     Route: 048
     Dates: start: 2013
  2. PEGINTRON [Suspect]
  3. RIBASPHERE [Suspect]
  4. LOTRIL (CLOTRIMAZOLE) [Concomitant]
  5. NAPROXEN [Concomitant]

REACTIONS (1)
  - Malaise [Unknown]
